FAERS Safety Report 6969712-X (Version None)
Quarter: 2010Q3

REPORT INFORMATION
  Report Type: 
  Country: None (occurrence: None)
  Receive Date: 20100908
  Receipt Date: 20100830
  Transmission Date: 20110219
  Serious: Yes (Hospitalization)
  Sender: FDA-Public Use
  Company Number: US-BIOGENIDEC-2010BI030399

PATIENT
  Age: 51 Year
  Sex: Female
  Weight: 63 kg

DRUGS (4)
  1. TYSABRI [Suspect]
     Indication: MULTIPLE SCLEROSIS
     Route: 042
     Dates: start: 20050201, end: 20050201
  2. TYSABRI [Suspect]
     Route: 042
     Dates: start: 20091103
  3. AVINZA [Concomitant]
     Indication: PAIN IN EXTREMITY
  4. AVINZA [Concomitant]

REACTIONS (7)
  - DRUG WITHDRAWAL SYNDROME [None]
  - DYSKINESIA [None]
  - EYE PRURITUS [None]
  - MULTIPLE SCLEROSIS RELAPSE [None]
  - TINNITUS [None]
  - TREMOR [None]
  - VISION BLURRED [None]
